FAERS Safety Report 6958171-9 (Version None)
Quarter: 2010Q3

REPORT INFORMATION
  Report Type: 
  Country: None (occurrence: None)
  Receive Date: 20100831
  Receipt Date: 20100819
  Transmission Date: 20110219
  Serious: Yes (Other)
  Sender: FDA-Public Use
  Company Number: JP-PFIZER INC-2010099407

PATIENT
  Age: 71 Year
  Sex: Male

DRUGS (1)
  1. SULPERAZON [Suspect]
     Dosage: UNK
     Route: 041

REACTIONS (1)
  - WHITE BLOOD CELL COUNT DECREASED [None]
